FAERS Safety Report 25250697 (Version 3)
Quarter: 2025Q2

REPORT INFORMATION
  Report Type: Spontaneous
  Country: RO (occurrence: RO)
  Receive Date: 20250429
  Receipt Date: 20250513
  Transmission Date: 20250717
  Serious: Yes (Hospitalization, Other)
  Sender: MYLAN
  Company Number: RO-ARENA-2025-00042

PATIENT
  Age: 40 Year
  Sex: Female

DRUGS (7)
  1. SERTRALINE [Suspect]
     Active Substance: SERTRALINE HYDROCHLORIDE
     Indication: Post-traumatic stress disorder
  2. ARIPIPRAZOLE [Suspect]
     Active Substance: ARIPIPRAZOLE
     Indication: Post-traumatic stress disorder
  3. ARIPIPRAZOLE [Suspect]
     Active Substance: ARIPIPRAZOLE
     Indication: Catatonia
  4. RISPERIDONE [Suspect]
     Active Substance: RISPERIDONE
     Indication: Post-traumatic stress disorder
  5. DIAZEPAM [Suspect]
     Active Substance: DIAZEPAM
     Indication: Post-traumatic stress disorder
  6. OXAZEPAM [Concomitant]
     Active Substance: OXAZEPAM
     Indication: Anxiolytic therapy
  7. LORAZEPAM [Concomitant]
     Active Substance: LORAZEPAM
     Indication: Catatonia

REACTIONS (7)
  - Disorganised speech [Recovering/Resolving]
  - Psychomotor hyperactivity [Recovering/Resolving]
  - Psychotic disorder [Recovering/Resolving]
  - Vertigo [Unknown]
  - Sedation [Unknown]
  - Disease recurrence [Unknown]
  - Therapeutic product effect incomplete [Not Recovered/Not Resolved]
